FAERS Safety Report 23859513 (Version 1)
Quarter: 2024Q2

REPORT INFORMATION
  Report Type: Spontaneous
  Country: US (occurrence: None)
  Receive Date: 20240515
  Receipt Date: 20240515
  Transmission Date: 20240716
  Serious: Yes (Hospitalization)
  Sender: FDA-Public Use
  Company Number: None

PATIENT
  Age: 18 Year
  Sex: Female

DRUGS (1)
  1. VIGABATRIN [Suspect]
     Active Substance: VIGABATRIN
     Dosage: FREQUENCY : TWICE A DAY;?OTHER ROUTE : VIA GTUBE ;?
     Route: 050
     Dates: start: 202101

REACTIONS (2)
  - Respiratory failure [None]
  - Pneumonia aspiration [None]

NARRATIVE: CASE EVENT DATE: 20240508
